FAERS Safety Report 5609005-6 (Version None)
Quarter: 2008Q1

REPORT INFORMATION
  Report Type: 
  Country: None (occurrence: None)
  Receive Date: 20080131
  Receipt Date: 20080130
  Transmission Date: 20080703
  Serious: Yes (Death)
  Sender: FDA-Public Use
  Company Number: PHBS2008CH01275

PATIENT
  Age: 78 Year
  Sex: Female

DRUGS (6)
  1. ACLASTA [Suspect]
     Indication: OSTEOPOROSIS
     Dosage: 5 MG/DAY
     Dates: start: 20080107
  2. TRIATEC [Concomitant]
  3. ASPIRIN [Concomitant]
  4. ISOPTIN - SLOW RELEASE [Concomitant]
  5. CALCIMAGON [Concomitant]
  6. CHONDROSULF [Concomitant]

REACTIONS (1)
  - DEATH [None]
